FAERS Safety Report 23257527 (Version 2)
Quarter: 2023Q4

REPORT INFORMATION
  Report Type: Report from Study
  Country: JP (occurrence: JP)
  Receive Date: 20231204
  Receipt Date: 20231214
  Transmission Date: 20240110
  Serious: Yes (Hospitalization, Other)
  Sender: FDA-Public Use
  Company Number: JP-GLAXOSMITHKLINE-JP2023GSK163740

PATIENT

DRUGS (2)
  1. DAPRODUSTAT [Suspect]
     Active Substance: DAPRODUSTAT
     Indication: Anaemia
  2. SOMATROPIN [Concomitant]
     Active Substance: SOMATROPIN
     Indication: Chronic kidney disease
     Dosage: 12 MG, QD
     Route: 058

REACTIONS (1)
  - Glomerulonephritis acute [Not Recovered/Not Resolved]

NARRATIVE: CASE EVENT DATE: 20231122
